FAERS Safety Report 8058819-4 (Version None)
Quarter: 2012Q1

REPORT INFORMATION
  Report Type: 
  Country: None (occurrence: None)
  Receive Date: 20120120
  Receipt Date: 20111220
  Transmission Date: 20120608
  Serious: Yes (Other)
  Sender: FDA-Public Use
  Company Number: US-BRISTOL-MYERS SQUIBB COMPANY-16307795

PATIENT

DRUGS (1)
  1. YERVOY [Suspect]

REACTIONS (2)
  - METASTASES TO SPINE [None]
  - MUSCULAR WEAKNESS [None]
